FAERS Safety Report 24441748 (Version 2)
Quarter: 2024Q4

REPORT INFORMATION
  Report Type: Spontaneous
  Country: US (occurrence: US)
  Receive Date: 20241016
  Receipt Date: 20241017
  Transmission Date: 20250115
  Serious: No
  Sender: ROCHE
  Company Number: US-ROCHE-3500086

PATIENT
  Sex: Male
  Weight: 23.59 kg

DRUGS (1)
  1. HEMLIBRA [Suspect]
     Active Substance: EMICIZUMAB-KXWH
     Indication: Haemophilia A without inhibitors
     Dosage: 45 MG EVERY ONCE A WEEK ;ONGOING: YES
     Route: 065
     Dates: start: 2020

REACTIONS (1)
  - Blood lead increased [Unknown]
